FAERS Safety Report 16485149 (Version 1)
Quarter: 2019Q2

REPORT INFORMATION
  Report Type: Spontaneous
  Country: FR (occurrence: FR)
  Receive Date: 20190627
  Receipt Date: 20190627
  Transmission Date: 20190711
  Serious: Yes (Other)
  Sender: FDA-Public Use
  Company Number: FR-MYLANLABS-2019M1059762

PATIENT
  Age: 25 Year
  Sex: Male

DRUGS (3)
  1. AMOXICILLINE                       /00249601/ [Interacting]
     Active Substance: AMOXICILLIN
     Indication: MENINGITIS
     Dosage: 16 GRAM, QD
     Route: 042
     Dates: start: 20181121, end: 20181123
  2. CEFOTAXIME [Interacting]
     Active Substance: CEFOTAXIME SODIUM
     Indication: MENINGITIS
     Dosage: 24 GRAM, QD
     Route: 042
     Dates: start: 20181121, end: 20181123
  3. ACICLOVIR [Suspect]
     Active Substance: ACYCLOVIR
     Indication: MENINGITIS
     Dosage: 3750 MILLIGRAM, QD
     Route: 042
     Dates: start: 20181121, end: 20181123

REACTIONS (3)
  - Drug interaction [Unknown]
  - Tonic convulsion [Recovered/Resolved]
  - Blood phosphorus decreased [Recovered/Resolved]

NARRATIVE: CASE EVENT DATE: 20181123
